FAERS Safety Report 8404953-6 (Version None)
Quarter: 2012Q2

REPORT INFORMATION
  Report Type: 
  Country: None (occurrence: None)
  Receive Date: 20120601
  Receipt Date: 20120523
  Transmission Date: 20120825
  Serious: Yes (Hospitalization)
  Sender: FDA-Public Use
  Company Number: US-BAYER-2012-051893

PATIENT
  Sex: Female
  Weight: 57 kg

DRUGS (1)
  1. MIDOL MENSTRUAL COMPLETE CAPLETS [Suspect]
     Indication: DYSMENORRHOEA
     Dosage: BOTTLE COUNT 24S
     Route: 048
     Dates: start: 20120506, end: 20120506

REACTIONS (4)
  - PALPITATIONS [None]
  - HYPERHIDROSIS [None]
  - HEART RATE IRREGULAR [None]
  - DISORIENTATION [None]
